FAERS Safety Report 8632360 (Version 3)
Quarter: 2014Q1

REPORT INFORMATION
  Report Type: Spontaneous
  Country: US (occurrence: US)
  Receive Date: 20120625
  Receipt Date: 20140226
  Transmission Date: 20141002
  Serious: Yes (Congenital Anomaly, Other)
  Sender: FDA-Public Use
  Company Number: US-PFIZER INC-2012148598

PATIENT
  Sex: Male

DRUGS (15)
  1. ZOLOFT [Suspect]
     Indication: DEPRESSION
     Dosage: 100 MG, DAILY
     Route: 064
     Dates: start: 199904, end: 199907
  2. ZOLOFT [Suspect]
     Indication: BIPOLAR DISORDER
     Dosage: 150 MG, DAILY
     Route: 064
     Dates: start: 199907, end: 199911
  3. ZOLOFT [Suspect]
     Dosage: 100 MG, DAILY
     Route: 064
     Dates: start: 199911, end: 200001
  4. PRENATAL VITAMINS [Concomitant]
     Indication: PREGNANCY
     Dosage: UNK
     Route: 064
     Dates: start: 1999, end: 2000
  5. TYLENOL [Concomitant]
     Indication: ANALGESIC THERAPY
     Dosage: UNK
     Route: 064
     Dates: start: 1999
  6. IMODIUM [Concomitant]
     Indication: DIARRHOEA
     Dosage: UNK
     Route: 064
     Dates: start: 1999
  7. TAGAMET [Concomitant]
     Indication: HERNIA
     Dosage: UNK
     Route: 064
     Dates: start: 1999
  8. VERAPAMIL [Concomitant]
     Indication: TACHYCARDIA
     Dosage: UNK
     Route: 064
     Dates: start: 20000104, end: 20000105
  9. WELLBUTRIN [Concomitant]
     Indication: DEPRESSION
     Dosage: UNK
     Route: 064
  10. LITHIUM [Concomitant]
     Dosage: UNK
     Route: 064
  11. NYQUIL [Concomitant]
     Dosage: UNK
     Route: 064
  12. THERAFLU [Concomitant]
     Dosage: UNK
     Route: 064
  13. IBUPROFEN [Concomitant]
     Dosage: UNK
     Route: 064
  14. CELEBREX [Concomitant]
     Dosage: UNK
     Route: 064
  15. ALEVE [Concomitant]
     Dosage: UNK
     Route: 064

REACTIONS (4)
  - Maternal exposure during pregnancy [Unknown]
  - Ventricular septal defect [Unknown]
  - Bicuspid aortic valve [Unknown]
  - Congenital anomaly [Unknown]
